FAERS Safety Report 12916019 (Version 1)
Quarter: 2016Q4

REPORT INFORMATION
  Report Type: Spontaneous
  Country: US (occurrence: US)
  Receive Date: 20161104
  Receipt Date: 20161104
  Transmission Date: 20170207
  Serious: No
  Sender: FDA-Public Use
  Company Number: US-SA-2016SA099935

PATIENT
  Age: 66 Year
  Sex: Male
  Weight: 97 kg

DRUGS (1)
  1. UNISOM SLEEPTABS [Suspect]
     Active Substance: DOXYLAMINE SUCCINATE
     Dosage: FREQUENCY: 3 TIMES
     Route: 065
     Dates: start: 20160516, end: 20160518

REACTIONS (3)
  - Wrong technique in product usage process [Unknown]
  - Nervousness [Recovered/Resolved]
  - Insomnia [Recovered/Resolved]
